FAERS Safety Report 16831474 (Version 1)
Quarter: 2019Q3

REPORT INFORMATION
  Report Type: Report from Study
  Country: None (occurrence: RO)
  Receive Date: 20190920
  Receipt Date: 20190920
  Transmission Date: 20191005
  Serious: Yes (Hospitalization, Other)
  Sender: FDA-Public Use
  Company Number: RO-ABBVIE-19K-135-2931775-00

PATIENT
  Sex: Female

DRUGS (2)
  1. HUMIRA [Suspect]
     Active Substance: ADALIMUMAB
     Indication: COLITIS ULCERATIVE
     Dosage: EVERY MONTH ON THE 1ST AND 15TH
     Route: 058
     Dates: start: 20150715, end: 20190701
  2. HUMIRA [Suspect]
     Active Substance: ADALIMUMAB
     Route: 058
     Dates: start: 20190731

REACTIONS (14)
  - Mucous stools [Recovered/Resolved]
  - Bacterial test positive [Recovered/Resolved]
  - Jaundice [Not Recovered/Not Resolved]
  - Abdominal pain [Recovered/Resolved]
  - Pain in extremity [Recovering/Resolving]
  - Hepatitis C [Recovered/Resolved]
  - Haematochezia [Recovered/Resolved]
  - Frequent bowel movements [Recovered/Resolved]
  - Oropharyngeal pain [Recovered/Resolved]
  - Laboratory test abnormal [Not Recovered/Not Resolved]
  - Laryngitis [Recovered/Resolved]
  - Finger deformity [Recovering/Resolving]
  - Pharyngeal disorder [Recovered/Resolved]
  - Pain in extremity [Recovered/Resolved]

NARRATIVE: CASE EVENT DATE: 2017
